FAERS Safety Report 9601136 (Version 2)
Quarter: 2013Q4

REPORT INFORMATION
  Report Type: Spontaneous
  Country: US (occurrence: US)
  Receive Date: 20131004
  Receipt Date: 20131004
  Transmission Date: 20140711
  Serious: No
  Sender: FDA-Public Use
  Company Number: US-AMGEN-USASP2013031448

PATIENT
  Age: 43 Year
  Sex: Male
  Weight: 102.4 kg

DRUGS (6)
  1. ENBREL [Suspect]
     Indication: PSORIATIC ARTHROPATHY
     Dosage: 50 MG, QWK
     Route: 058
     Dates: start: 201208
  2. ENBREL [Suspect]
     Indication: PSORIASIS
  3. IBUPROF [Concomitant]
     Dosage: 100/5ML
  4. MULTIVITAMINS, PLAIN [Concomitant]
     Dosage: UNK
  5. TACLONEX [Concomitant]
     Indication: PSORIASIS
     Dosage: UNK, QD
     Route: 061
  6. CLOBEX                             /00012002/ [Concomitant]
     Indication: PSORIASIS
     Dosage: UNK UNK, QD
     Route: 061

REACTIONS (5)
  - Skin disorder [Not Recovered/Not Resolved]
  - Drug effect incomplete [Unknown]
  - Therapeutic response decreased [Not Recovered/Not Resolved]
  - Psoriasis [Not Recovered/Not Resolved]
  - Localised infection [Not Recovered/Not Resolved]
